FAERS Safety Report 9140253 (Version 4)
Quarter: 2013Q2

REPORT INFORMATION
  Report Type: Report from Study
  Country: US (occurrence: US)
  Receive Date: 20130305
  Receipt Date: 20130430
  Transmission Date: 20140414
  Serious: Yes (Hospitalization)
  Sender: FDA-Public Use
  Company Number: PHHO2013US003040

PATIENT
  Age: 54 Year
  Sex: Female
  Weight: 78.2 kg

DRUGS (10)
  1. GILENYA [Suspect]
     Indication: MULTIPLE SCLEROSIS
     Dosage: 0.5 MG, QD
     Route: 048
     Dates: start: 20121005
  2. LEVOQUIN [Suspect]
     Indication: PYELONEPHRITIS ACUTE
     Dosage: 500 MG, BID
     Dates: start: 20130225
  3. LEVOQUIN [Suspect]
     Indication: BACTERAEMIA
  4. LISINOPRIL [Concomitant]
     Indication: HYPERTENSION
     Dosage: 10 MG, QD
  5. KARIVA [Concomitant]
     Indication: ORAL CONTRACEPTION
     Dosage: 0.15-2 MG QD
  6. EXCEDRIN [Concomitant]
     Indication: MIGRAINE
     Dosage: UNK
  7. VICODIN [Concomitant]
     Indication: MIGRAINE
  8. HYDROCODONE [Concomitant]
     Indication: HEADACHE
     Dosage: 5/500 MG PRN
  9. FISH OIL [Concomitant]
     Indication: SUPPLEMENTATION THERAPY
     Dosage: UNK
  10. CALCIUM [Concomitant]
     Indication: SUPPLEMENTATION THERAPY
     Dosage: UNK

REACTIONS (4)
  - Pyelonephritis acute [Recovered/Resolved]
  - Dehydration [Recovered/Resolved]
  - Bacteraemia [Recovered/Resolved]
  - Myopathy [Recovered/Resolved]
